FAERS Safety Report 7225079-3 (Version None)
Quarter: 2011Q1

REPORT INFORMATION
  Report Type: 
  Country: None (occurrence: None)
  Receive Date: 20110104
  Receipt Date: 20101222
  Transmission Date: 20110831
  Serious: Yes (Hospitalization)
  Sender: FDA-Public Use
  Company Number: 023662

PATIENT
  Sex: Female

DRUGS (5)
  1. VIMPAT [Suspect]
     Indication: EPILEPSY
     Dosage: (100 MG BID)
     Dates: start: 20101101
  2. FRISIUM [Concomitant]
  3. VALPROATE SODIUM [Concomitant]
  4. INTRAGAM /00025201/ (INTRAGAM) [Suspect]
  5. OLANZAPINE [Concomitant]

REACTIONS (2)
  - PROTEINURIA [None]
  - NEUTROPENIA [None]
